FAERS Safety Report 7197725-4 (Version None)
Quarter: 2010Q4

REPORT INFORMATION
  Report Type: 
  Country: None (occurrence: None)
  Receive Date: 20101213
  Receipt Date: 20101203
  Transmission Date: 20110411
  Serious: Yes (Hospitalization, Other)
  Sender: FDA-Public Use
  Company Number: 2010EN000302

PATIENT
  Age: 23 Year
  Sex: Female
  Weight: 103.3 kg

DRUGS (7)
  1. ONCASPAR [Suspect]
     Indication: ACUTE LYMPHOCYTIC LEUKAEMIA
     Dosage: 5650 IU; K1; IV, 5550 IU; K1; IV
     Route: 042
     Dates: start: 20100816, end: 20100816
  2. ONCASPAR [Suspect]
     Indication: ACUTE LYMPHOCYTIC LEUKAEMIA
     Dosage: 5650 IU; K1; IV, 5550 IU; K1; IV
     Route: 042
     Dates: start: 20101004, end: 20101004
  3. CYCLOPHOSPHAMIDE [Suspect]
     Indication: ACUTE LYMPHOCYTIC LEUKAEMIA
     Dosage: 2200 MG; IV
     Route: 042
     Dates: end: 20100920
  4. CYTARABINE [Suspect]
     Indication: ACUTE LYMPHOCYTIC LEUKAEMIA
     Dosage: 1320 MG; IV
     Route: 042
     Dates: start: 20100920, end: 20101105
  5. MERCAPTOPURINE [Suspect]
     Indication: ACUTE LYMPHOCYTIC LEUKAEMIA
     Dosage: 1825 MG; IV
     Route: 042
     Dates: end: 20101003
  6. METHOTREXATE [Suspect]
     Indication: ACUTE LYMPHOCYTIC LEUKAEMIA
     Dosage: 60 MG; IT
     Route: 042
     Dates: end: 20101011
  7. VINCRISTINE [Suspect]
     Indication: ACUTE LYMPHOCYTIC LEUKAEMIA
     Dosage: 4 MG; IV
     Route: 042
     Dates: end: 20101011

REACTIONS (17)
  - ABDOMINAL PAIN [None]
  - BACK PAIN [None]
  - CELLULITIS [None]
  - DIZZINESS [None]
  - FEBRILE NEUTROPENIA [None]
  - FLUID OVERLOAD [None]
  - HEADACHE [None]
  - HYPERBILIRUBINAEMIA [None]
  - HYPERTRIGLYCERIDAEMIA [None]
  - HYPOXIA [None]
  - MENORRHAGIA [None]
  - MYALGIA [None]
  - NAUSEA [None]
  - PANCYTOPENIA [None]
  - PYREXIA [None]
  - RESPIRATORY DISTRESS [None]
  - VOMITING [None]
